FAERS Safety Report 23221638 (Version 1)
Quarter: 2023Q4

REPORT INFORMATION
  Report Type: Other
  Country: IT (occurrence: IT)
  Receive Date: 20231123
  Receipt Date: 20231123
  Transmission Date: 20240110
  Serious: Yes (Hospitalization)
  Sender: FDA-Public Use
  Company Number: None

PATIENT

DRUGS (1)
  1. DECA-DURABOLIN [Suspect]
     Active Substance: NANDROLONE DECANOATE
     Indication: Osteoporosis
     Dosage: 25 MG
     Route: 030

REACTIONS (1)
  - Injection site abscess [Recovering/Resolving]

NARRATIVE: CASE EVENT DATE: 20231107
